FAERS Safety Report 8509227-0 (Version None)
Quarter: 2012Q3

REPORT INFORMATION
  Report Type: 
  Country: None (occurrence: None)
  Receive Date: 20120713
  Receipt Date: 20120705
  Transmission Date: 20120928
  Serious: Yes (Death, Hospitalization)
  Sender: FDA-Public Use
  Company Number: US-ACTELION-A-US2012-60207

PATIENT

DRUGS (6)
  1. COUMADIN [Concomitant]
  2. LEXIVA [Concomitant]
  3. TRACLEER [Suspect]
     Indication: PULMONARY ARTERIAL HYPERTENSION
     Dosage: 125 MG, BID
     Route: 048
  4. EPOPROSTENOL SODIUM [Suspect]
     Indication: PULMONARY ARTERIAL HYPERTENSION
     Dosage: 26 NG/KG, PER MIN
     Route: 042
     Dates: start: 20120229
  5. ADCIRCA [Concomitant]
  6. COMBIVIR [Concomitant]

REACTIONS (6)
  - OEDEMA PERIPHERAL [None]
  - RENAL FAILURE [None]
  - PULMONARY ARTERIAL HYPERTENSION [None]
  - SWELLING [None]
  - DEATH [None]
  - FLUID RETENTION [None]
